FAERS Safety Report 21873491 (Version 3)
Quarter: 2023Q1

REPORT INFORMATION
  Report Type: Other
  Country: CA (occurrence: None)
  Receive Date: 20230117
  Receipt Date: 20230320
  Transmission Date: 20230417
  Serious: Yes (Other)
  Sender: FDA-Public Use
  Company Number: CA-ROCHE-3198117

PATIENT
  Sex: Female

DRUGS (13)
  1. ACTEMRA [Suspect]
     Active Substance: TOCILIZUMAB
     Indication: Giant cell arteritis
     Route: 058
     Dates: start: 20210222
  2. AMLODIPINE [Concomitant]
     Active Substance: AMLODIPINE BESYLATE
  3. BRICANYL [Concomitant]
     Active Substance: TERBUTALINE SULFATE
  4. CALCIUM [Concomitant]
     Active Substance: CALCIUM
  5. FOSAMAX [Concomitant]
     Active Substance: ALENDRONATE SODIUM
  6. MACROBID [Concomitant]
     Active Substance: NITROFURANTOIN\NITROFURANTOIN MONOHYDRATE
     Indication: Urinary tract infection
  7. MAGNESIUM [Concomitant]
     Active Substance: MAGNESIUM
  8. POTASSIUM [Concomitant]
     Active Substance: POTASSIUM
  9. PREDNISONE [Concomitant]
     Active Substance: PREDNISONE
     Dosage: TO INCREASE TO 8MG
  10. RABEPRAZOLE [Concomitant]
     Active Substance: RABEPRAZOLE
  11. CETIRIZINE HYDROCHLORIDE [Concomitant]
     Active Substance: CETIRIZINE HYDROCHLORIDE
  12. SPIRONOLACTONE [Concomitant]
     Active Substance: SPIRONOLACTONE
  13. ZENHALE [Concomitant]
     Active Substance: FORMOTEROL FUMARATE\MOMETASONE FUROATE

REACTIONS (10)
  - White blood cell count increased [Unknown]
  - C-reactive protein increased [Unknown]
  - Pneumonia [Unknown]
  - Product storage error [Unknown]
  - Ear pain [Unknown]
  - Glossodynia [Unknown]
  - Malaise [Unknown]
  - Bacterial infection [Unknown]
  - Off label use [Unknown]
  - Viral infection [Unknown]

NARRATIVE: CASE EVENT DATE: 20220101
